FAERS Safety Report 12378953 (Version 1)
Quarter: 2016Q2

REPORT INFORMATION
  Report Type: Spontaneous
  Country: US (occurrence: US)
  Receive Date: 20160517
  Receipt Date: 20160517
  Transmission Date: 20160815
  Serious: Yes (Death)
  Sender: FDA-Public Use
  Company Number: US-JNJFOC-20160513207

PATIENT
  Age: 88 Year
  Sex: Female
  Weight: 45.36 kg

DRUGS (6)
  1. SYNTHROID [Concomitant]
     Active Substance: LEVOTHYROXINE SODIUM
     Indication: HYPOTHYROIDISM
     Route: 065
  2. RISPERIDONE. [Suspect]
     Active Substance: RISPERIDONE
     Indication: AGITATION
     Route: 048
     Dates: start: 20150306
  3. RISPERIDONE. [Suspect]
     Active Substance: RISPERIDONE
     Indication: AGITATION
     Dosage: TOOK 0.5 MG AND THEN ANOTHER DOSE OF 0.5 MG, BETWEEN 05-MAR-2015 AND 06-MAR-2015
     Route: 048
  4. RISPERIDONE. [Suspect]
     Active Substance: RISPERIDONE
     Indication: AGITATION
     Route: 048
     Dates: start: 20150227, end: 20150228
  5. RISPERIDONE. [Suspect]
     Active Substance: RISPERIDONE
     Indication: AGITATION
     Dosage: 0.5 MG AT BEDTIME AND 0.5 MG TWICE AS NEEDED
     Route: 048
     Dates: start: 20150301
  6. NAMENDA [Concomitant]
     Active Substance: MEMANTINE HYDROCHLORIDE
     Indication: DEMENTIA
     Route: 065

REACTIONS (6)
  - Hypotension [Fatal]
  - Sedation [Unknown]
  - Unresponsive to stimuli [Fatal]
  - Incorrect dose administered [Unknown]
  - Off label use [Unknown]
  - Sepsis [Fatal]

NARRATIVE: CASE EVENT DATE: 20150227
